FAERS Safety Report 5571330-5 (Version None)
Quarter: 2007Q4

REPORT INFORMATION
  Report Type: 
  Country: None (occurrence: None)
  Receive Date: 20071221
  Receipt Date: 20071009
  Transmission Date: 20080405
  Serious: No
  Sender: FDA-Public Use
  Company Number: A0665017A

PATIENT
  Age: 50 Year
  Sex: Female
  Weight: 90.9 kg

DRUGS (1)
  1. FLUTICASONE PROPIONATE [Suspect]
     Indication: VASOMOTOR RHINITIS
     Dosage: 2SPR TWICE PER DAY
     Route: 045
     Dates: start: 20070501

REACTIONS (5)
  - DRUG INEFFECTIVE [None]
  - DYSPNOEA [None]
  - HEADACHE [None]
  - PHARMACEUTICAL PRODUCT COMPLAINT [None]
  - SINUS CONGESTION [None]
